FAERS Safety Report 7630204-6 (Version None)
Quarter: 2011Q3

REPORT INFORMATION
  Report Type: 
  Country: None (occurrence: None)
  Receive Date: 20110722
  Receipt Date: 20110711
  Transmission Date: 20111222
  Serious: Yes (Hospitalization, Other)
  Sender: FDA-Public Use
  Company Number: US-BAYER-2011-047590

PATIENT
  Age: 37 Year
  Sex: Female
  Weight: 106.58 kg

DRUGS (11)
  1. YAZ [Suspect]
     Indication: ACNE
  2. IBUPROFEN [Concomitant]
  3. NICOTINE [Concomitant]
  4. FISH OIL [Concomitant]
  5. CELEXA [Concomitant]
     Indication: DEPRESSION
  6. YAZ [Suspect]
     Indication: CONTRACEPTION
     Dosage: UNK
     Dates: start: 20071101, end: 20080501
  7. PHENTERMINE [Concomitant]
     Indication: WEIGHT DECREASED
     Dosage: UNK
  8. WELLBUTRIN [Concomitant]
     Dosage: UNK UNK, BID
  9. MINOCIN [Concomitant]
  10. VITAMIN TAB [Concomitant]
  11. ANTI-ACNE PREPARATIONS [Concomitant]
     Indication: ACNE

REACTIONS (2)
  - CHOLECYSTITIS [None]
  - CHOLELITHIASIS [None]
